FAERS Safety Report 5516913-3 (Version None)
Quarter: 2007Q4

REPORT INFORMATION
  Report Type: 
  Country: None (occurrence: None)
  Receive Date: 20071114
  Receipt Date: 20070531
  Transmission Date: 20080405
  Serious: No
  Sender: FDA-Public Use
  Company Number: A0653453A

PATIENT
  Age: 52 Year
  Sex: Male

DRUGS (2)
  1. COMMIT [Suspect]
  2. COMMIT [Suspect]

REACTIONS (2)
  - DYSPEPSIA [None]
  - SALIVARY HYPERSECRETION [None]
